FAERS Safety Report 21461473 (Version 2)
Quarter: 2023Q1

REPORT INFORMATION
  Report Type: Report from Study
  Country: US (occurrence: US)
  Receive Date: 20221015
  Receipt Date: 20230101
  Transmission Date: 20230418
  Serious: No
  Sender: FDA-Public Use
  Company Number: US-ABBVIE-4141218

PATIENT
  Sex: Male

DRUGS (7)
  1. VENCLEXTA [Suspect]
     Active Substance: VENETOCLAX
     Indication: Non-Hodgkin^s lymphoma
     Dosage: TAKE 20MG(2X10MG TABS) BY MOUTH EVERY DAY ON WEEK 1, FORM STRENGTH 10 MG
     Route: 048
  2. VENCLEXTA [Suspect]
     Active Substance: VENETOCLAX
     Indication: Non-Hodgkin^s lymphoma
     Dosage: 200MG(2X100MG TABS) DAILY WEEK 4, FORM STRENGTH 50 MG
     Route: 048
  3. VENCLEXTA [Suspect]
     Active Substance: VENETOCLAX
     Indication: Non-Hodgkin^s lymphoma
     Dosage: 100MG(1X100MG TAB) BY MOUTH DAILY WEEK 3, FORM STRENGTH 100 MG
     Route: 048
  4. VENCLEXTA [Suspect]
     Active Substance: VENETOCLAX
     Indication: Non-Hodgkin^s lymphoma
     Dosage: (1X50MG TAB) DAILY BY MOUTH WEEK 2, FORM STRENGTH 100 MG
     Route: 048
  5. CALQUENCE [Concomitant]
     Active Substance: ACALABRUTINIB
     Indication: Product used for unknown indication
  6. RITUXAN [Concomitant]
     Active Substance: RITUXIMAB
     Indication: Product used for unknown indication
  7. AMIODARONE [Concomitant]
     Active Substance: AMIODARONE
     Indication: Product used for unknown indication

REACTIONS (2)
  - Off label use [Unknown]
  - Infection [Unknown]
